FAERS Safety Report 6767524-3 (Version None)
Quarter: 2010Q2

REPORT INFORMATION
  Report Type: 
  Country: None (occurrence: None)
  Receive Date: 20100614
  Receipt Date: 20100609
  Transmission Date: 20101027
  Serious: Yes (Death)
  Sender: FDA-Public Use
  Company Number: FR-CELGENEUS-056-21880-10061045

PATIENT
  Age: 69 Year

DRUGS (3)
  1. REVLIMID [Suspect]
     Route: 048
  2. ARA-C [Suspect]
     Route: 065
  3. DAUNORUBICIN HCL [Suspect]
     Route: 065

REACTIONS (1)
  - SEPSIS [None]
